FAERS Safety Report 8896100 (Version 2)
Quarter: 2013Q1

REPORT INFORMATION
  Report Type: Report from Study
  Country: US (occurrence: US)
  Receive Date: 20121107
  Receipt Date: 20130214
  Transmission Date: 20140127
  Serious: Yes (Death, Life-Threatening, Hospitalization, Other)
  Sender: FDA-Public Use
  Company Number: US-PURDUE-USA-2012-0095340

PATIENT
  Age: 50 Year
  Sex: Female

DRUGS (16)
  1. MORPHINE SULFATE (SIMILAR TO NDA 19-516) [Suspect]
     Indication: PAIN
     Dosage: 30 MG, Q12H
     Route: 048
     Dates: start: 20120327
  2. OXYCONTIN (NDA 22-272) [Suspect]
     Indication: PAIN
     Dosage: 10 MG, Q6H
     Route: 048
     Dates: start: 20120810
  3. OXYCODONE HCL [Suspect]
     Indication: PAIN
     Dosage: 60 MG, Q8H
     Route: 048
     Dates: start: 20120810
  4. DACOMITINIB [Suspect]
     Indication: NON-SMALL CELL LUNG CANCER
     Dosage: 45 MG, DAILY
     Route: 048
     Dates: start: 20120726, end: 20120922
  5. PLACEBO [Suspect]
     Indication: NON-SMALL CELL LUNG CANCER
     Dosage: 200 MG, BID
     Route: 048
     Dates: start: 20120726, end: 20120822
  6. PRAZOSIN HYDROCHLORIDE [Suspect]
     Indication: HYPERTENSION
     Dosage: 1 MG, QD PRN
     Route: 048
     Dates: start: 20120810
  7. CYMBALTA [Suspect]
     Indication: BIPOLAR DISORDER
     Dosage: 120 MG, QD PRN
     Route: 048
     Dates: start: 20120327
  8. WELLBUTRIN [Suspect]
     Indication: BIPOLAR DISORDER
     Dosage: 300 MG, DAILY
     Route: 048
     Dates: start: 20120327
  9. ZYPREXA [Suspect]
     Indication: BIPOLAR DISORDER
     Dosage: 7.5 20 MG QD
     Route: 048
     Dates: start: 20120327
  10. TOPAMAX [Suspect]
     Indication: BIPOLAR DISORDER
     Dosage: 50 MG, QD PRN
     Route: 048
     Dates: start: 20120329
  11. CLONAZEPAM [Suspect]
     Indication: BIPOLAR DISORDER
     Dosage: 0.5 MG, QD PRN
     Route: 048
     Dates: start: 20120327
  12. PERCOCET                           /00867901/ [Suspect]
     Indication: BIPOLAR DISORDER
     Dosage: 5 MG, Q6H
     Route: 048
     Dates: start: 20120327
  13. IRON [Concomitant]
     Indication: PROPHYLAXIS
  14. VITAMIN B12                        /00056201/ [Concomitant]
     Indication: PROPHYLAXIS
  15. CALCIUM CITRATE [Concomitant]
     Indication: PROPHYLAXIS
  16. FOLIC ACID [Concomitant]
     Indication: PROPHYLAXIS

REACTIONS (10)
  - Gastrointestinal haemorrhage [Fatal]
  - Hypovolaemic shock [Fatal]
  - Cardio-respiratory arrest [Unknown]
  - Small intestinal obstruction [Unknown]
  - Hypoxia [Unknown]
  - Hypotension [Unknown]
  - Haematemesis [Unknown]
  - Abdominal pain [Unknown]
  - Abdominal distension [Unknown]
  - Flatulence [Unknown]
